FAERS Safety Report 13390686 (Version 2)
Quarter: 2017Q2

REPORT INFORMATION
  Report Type: Report from Study
  Country: US (occurrence: US)
  Receive Date: 20170331
  Receipt Date: 20170517
  Transmission Date: 20170830
  Serious: Yes (Hospitalization)
  Sender: FDA-Public Use
  Company Number: US-ASTRAZENECA-2017SE32403

PATIENT
  Age: 873 Month
  Sex: Female
  Weight: 89.4 kg

DRUGS (3)
  1. OXYGEN. [Concomitant]
     Active Substance: OXYGEN
     Dosage: AS NEEDED AND WHEN SHE IS SLEEPING
  2. BYETTA [Suspect]
     Active Substance: EXENATIDE
     Indication: TYPE 2 DIABETES MELLITUS
     Route: 058
     Dates: start: 20170315
  3. BYETTA [Suspect]
     Active Substance: EXENATIDE
     Indication: TYPE 2 DIABETES MELLITUS
     Dosage: 250 MCG/2.4 ML PEN
     Route: 058
     Dates: start: 2015, end: 201612

REACTIONS (8)
  - Impaired driving ability [Unknown]
  - Urinary tract infection [Recovered/Resolved]
  - Insurance issue [Recovered/Resolved]
  - Drug dose omission [Not Recovered/Not Resolved]
  - Blood glucose increased [Recovered/Resolved]
  - Hypotension [Recovered/Resolved]
  - Staphylococcal infection [Unknown]
  - Device malfunction [Unknown]

NARRATIVE: CASE EVENT DATE: 201701
